FAERS Safety Report 6755469-4 (Version None)
Quarter: 2010Q2

REPORT INFORMATION
  Report Type: 
  Country: None (occurrence: None)
  Receive Date: 20100524
  Receipt Date: 20100301
  Transmission Date: 20101027
  Serious: No
  Sender: FDA-Public Use
  Company Number: 007990

PATIENT
  Sex: Female

DRUGS (1)
  1. CIMZIA [Suspect]
     Dosage: (400 MG Q 4 WEEKS SUBCUTANEOUS)
     Route: 058
     Dates: end: 20100101

REACTIONS (3)
  - BONE MARROW FAILURE [None]
  - HYPOTENSION [None]
  - IMMUNE SYSTEM DISORDER [None]
